FAERS Safety Report 9817931 (Version 1)
Quarter: 2013Q4

REPORT INFORMATION
  Report Type: Spontaneous
  Country: US (occurrence: None)
  Receive Date: 20131223
  Receipt Date: 20131223
  Transmission Date: 20140711
  Serious: Yes (Other)
  Sender: FDA-Public Use
  Company Number: 219726

PATIENT
  Age: 64 Year
  Sex: Female

DRUGS (1)
  1. PICATO GEL [Suspect]
     Indication: PRECANCEROUS CELLS PRESENT
     Dosage: 1 IN 1 D
     Route: 061
     Dates: start: 20121116, end: 20121118

REACTIONS (7)
  - Application site erythema [None]
  - Application site swelling [None]
  - Skin tightness [None]
  - Application site scab [None]
  - Application site exfoliation [None]
  - Application site discolouration [None]
  - Drug administered at inappropriate site [None]
